FAERS Safety Report 9235553 (Version 1)
Quarter: 2013Q2

REPORT INFORMATION
  Report Type: Spontaneous
  Country: US (occurrence: None)
  Receive Date: 20130416
  Receipt Date: 20130416
  Transmission Date: 20140414
  Serious: Yes (Hospitalization)
  Sender: FDA-Public Use
  Company Number: None

PATIENT
  Age: 35 Year
  Sex: Male
  Weight: 64.3 kg

DRUGS (11)
  1. MYFORTIC [Suspect]
     Indication: TRANSPLANT
     Dosage: 1080 BID ORAL
     Route: 048
     Dates: start: 20120411, end: 2012
  2. MYFORTIC [Suspect]
     Indication: IMMUNOSUPPRESSION
     Dosage: 1080 BID ORAL
     Route: 048
     Dates: start: 20120411, end: 2012
  3. PROGRAF [Concomitant]
  4. PREDNISONE [Concomitant]
  5. AMLODIPINE [Concomitant]
  6. MAGNESIUM OXIDE [Concomitant]
  7. HUMALOG [Concomitant]
  8. LANTUS [Concomitant]
  9. METORPOLOL [Concomitant]
  10. BACTRIM SS [Concomitant]
  11. PEPCID [Concomitant]

REACTIONS (1)
  - Procedural pain [None]
